FAERS Safety Report 11334955 (Version 1)
Quarter: 2015Q3

REPORT INFORMATION
  Report Type: Spontaneous
  Country: PL (occurrence: PL)
  Receive Date: 20150804
  Receipt Date: 20150804
  Transmission Date: 20151125
  Serious: Yes (Other)
  Sender: FDA-Public Use
  Company Number: PL-AMGEN-POLSP2015077096

PATIENT
  Age: 63 Year
  Sex: Female

DRUGS (4)
  1. ZARZIO [Suspect]
     Active Substance: FILGRASTIM
     Indication: PRODUCT USED FOR UNKNOWN INDICATION
     Dosage: UNK
     Route: 065
  2. RITUXIMAB [Concomitant]
     Active Substance: RITUXIMAB
     Indication: LYMPHANGIOMA
     Dosage: UNK
  3. NEULASTA [Suspect]
     Active Substance: PEGFILGRASTIM
     Indication: PRODUCT USED FOR UNKNOWN INDICATION
     Dosage: UNK
     Route: 065
  4. EQUORAL [Concomitant]
     Active Substance: CYCLOSPORINE
     Indication: ANAEMIA
     Dosage: UNK

REACTIONS (5)
  - Hypotonia [Unknown]
  - Anaphylactic reaction [Unknown]
  - Aplasia pure red cell [Unknown]
  - Visual impairment [Unknown]
  - Dyspnoea [Unknown]
